FAERS Safety Report 9485434 (Version 4)
Quarter: 2013Q4

REPORT INFORMATION
  Report Type: Spontaneous
  Country: US (occurrence: US)
  Receive Date: 20130829
  Receipt Date: 20131015
  Transmission Date: 20140711
  Serious: Yes (Death, Hospitalization)
  Sender: FDA-Public Use
  Company Number: US-AMGEN-USASP2013059911

PATIENT
  Age: 78 Year
  Sex: Female
  Weight: 49.43 kg

DRUGS (7)
  1. PROLIA [Suspect]
     Indication: OSTEOPOROSIS
     Dosage: 60 UNK, Q6MO
     Route: 058
     Dates: start: 20120726, end: 20130307
  2. ADVICOR [Concomitant]
     Indication: BLOOD CHOLESTEROL INCREASED
     Dosage: 500/20, 1 TAB/DAY
  3. TYLENOL                            /00020001/ [Concomitant]
     Indication: PAIN
     Dosage: 40 UNK, 1 TAB
  4. CYMBALTA [Concomitant]
     Indication: DEPRESSION
     Dosage: 60 UNK, QD
  5. NEURONTIN [Concomitant]
     Indication: NEURALGIA
     Dosage: 300 UNK, TID
  6. SKELAXIN                           /00611501/ [Concomitant]
     Indication: MUSCLE SPASMS
     Dosage: 800 UNK, TID
  7. RESTORIL                           /00054301/ [Concomitant]
     Indication: SLEEP DISORDER
     Dosage: 15 UNK, 1 TAB.

REACTIONS (4)
  - Post procedural complication [Fatal]
  - Intestinal ischaemia [Unknown]
  - Abdominal pain [Unknown]
  - Diarrhoea haemorrhagic [Unknown]
